FAERS Safety Report 6649571-5 (Version None)
Quarter: 2010Q1

REPORT INFORMATION
  Report Type: 
  Country: None (occurrence: None)
  Receive Date: 20100324
  Receipt Date: 20100324
  Transmission Date: 20100710
  Serious: Yes (Disabling)
  Sender: FDA-Public Use
  Company Number: None

PATIENT
  Sex: Female
  Weight: 70.45 kg

DRUGS (14)
  1. ALENDRONATE SODIUM [Suspect]
     Indication: OSTEOPOROSIS
     Dosage: 70MG WEEKLY PO
     Route: 048
     Dates: start: 20091120, end: 20091216
  2. ACETAMINOPHEN [Concomitant]
  3. VIT B12 [Concomitant]
  4. LACTULOSE [Concomitant]
  5. DIVALPROEX SODIUM [Concomitant]
  6. BENZTROPINE MESYLATE [Concomitant]
  7. CALCIUM [Concomitant]
  8. DUCOSATE [Concomitant]
  9. FOLIC ACID [Concomitant]
  10. MOM [Concomitant]
  11. OMEPRAZOLE [Concomitant]
  12. MULTI-VITAMIN [Concomitant]
  13. OLANZAPINE [Concomitant]
  14. OXYBUTYNIN [Concomitant]

REACTIONS (1)
  - NEUTROPHIL COUNT DECREASED [None]
